FAERS Safety Report 9991253 (Version 1)
Quarter: 2014Q1

REPORT INFORMATION
  Report Type: Spontaneous
  Country: US (occurrence: US)
  Receive Date: 20140310
  Receipt Date: 20140310
  Transmission Date: 20141002
  Serious: No
  Sender: FDA-Public Use
  Company Number: US-009507513-1402USA012337

PATIENT
  Sex: Female
  Weight: 63.49 kg

DRUGS (2)
  1. IMPLANON [Suspect]
     Indication: CONTRACEPTION
     Dosage: STANDARD
     Route: 059
     Dates: start: 201312
  2. IMPLANON [Suspect]
     Dosage: STANDARD
     Route: 059
     Dates: start: 201209, end: 201306

REACTIONS (4)
  - Haemorrhage urinary tract [Unknown]
  - Menorrhagia [Recovered/Resolved]
  - Menstrual disorder [Unknown]
  - Menstruation irregular [Unknown]
